FAERS Safety Report 7234830-8 (Version None)
Quarter: 2011Q1

REPORT INFORMATION
  Report Type: 
  Country: None (occurrence: None)
  Receive Date: 20110120
  Receipt Date: 20110113
  Transmission Date: 20110831
  Serious: Yes (Other)
  Sender: FDA-Public Use
  Company Number: US-ASTRAZENECA-2008UW11510

PATIENT
  Age: 462 Month
  Sex: Female
  Weight: 98.9 kg

DRUGS (6)
  1. SEROQUEL [Suspect]
     Dosage: 100 TO 200 MG
     Route: 048
     Dates: start: 20050404
  2. GEODON [Concomitant]
  3. SEROQUEL [Suspect]
     Indication: PSYCHOTIC DISORDER
     Dosage: 100 TO 600 MG
     Route: 048
     Dates: start: 20030101, end: 20051001
  4. SEROQUEL [Suspect]
     Dosage: 100 TO 200 MG
     Route: 048
     Dates: start: 20050404
  5. SEROQUEL [Suspect]
     Indication: DEPRESSION
     Dosage: 100 TO 600 MG
     Route: 048
     Dates: start: 20030101, end: 20051001
  6. PROZAC [Concomitant]
     Dates: start: 20041116

REACTIONS (3)
  - VISION BLURRED [None]
  - NEUROPATHY PERIPHERAL [None]
  - DIABETES MELLITUS [None]
